FAERS Safety Report 9640986 (Version 1)
Quarter: 2013Q4

REPORT INFORMATION
  Report Type: Report from Study
  Country: US (occurrence: US)
  Receive Date: 20131023
  Receipt Date: 20131023
  Transmission Date: 20140711
  Serious: No
  Sender: FDA-Public Use
  Company Number: US-ABBVIE-13P-163-1067545-00

PATIENT
  Age: 30 Year
  Sex: Female

DRUGS (3)
  1. LUPRON DEPOT [Suspect]
     Indication: ENDOMETRIOSIS
     Route: 030
  2. LUPRON DEPOT [Suspect]
     Route: 030
     Dates: start: 201302
  3. NORETHINDRONE ACETATE [Suspect]
     Indication: ENDOMETRIOSIS
     Route: 048
     Dates: start: 201302

REACTIONS (2)
  - Joint swelling [Not Recovered/Not Resolved]
  - Bone swelling [Not Recovered/Not Resolved]
